FAERS Safety Report 17367228 (Version 1)
Quarter: 2020Q1

REPORT INFORMATION
  Report Type: Spontaneous
  Country: FR (occurrence: FR)
  Receive Date: 20200204
  Receipt Date: 20200204
  Transmission Date: 20200409
  Serious: Yes (Other)
  Sender: FDA-Public Use
  Company Number: FR-MYLANLABS-2020M1011939

PATIENT
  Age: 49 Year
  Sex: Female

DRUGS (3)
  1. LAMICTAL [Suspect]
     Active Substance: LAMOTRIGINE
     Indication: PRODUCT USED FOR UNKNOWN INDICATION
     Dosage: 125 MG
     Dates: start: 2001
  2. LEVONORGESTREL. [Suspect]
     Active Substance: LEVONORGESTREL
     Indication: CONTRACEPTION
     Dosage: UNK
     Route: 048
  3. LAMICTAL [Suspect]
     Active Substance: LAMOTRIGINE
     Dosage: 150 MILLIGRAM, QD

REACTIONS (12)
  - Polymenorrhoea [Unknown]
  - Alopecia [Unknown]
  - Back pain [Unknown]
  - Autoimmune thyroiditis [Unknown]
  - Irritability [Unknown]
  - Vulvovaginal dryness [Unknown]
  - Depression [Unknown]
  - Dry mouth [Unknown]
  - Fatigue [Unknown]
  - Hallucination [Recovered/Resolved]
  - Tremor [Unknown]
  - Diarrhoea [Unknown]
